FAERS Safety Report 7645834-5 (Version None)
Quarter: 2011Q3

REPORT INFORMATION
  Report Type: 
  Country: None (occurrence: None)
  Receive Date: 20110729
  Receipt Date: 20110720
  Transmission Date: 20111222
  Serious: Yes (Other)
  Sender: FDA-Public Use
  Company Number: PHHY2011US65801

PATIENT

DRUGS (1)
  1. OCTREOTIDE ACETATE [Suspect]
     Dosage: DOSE RANGED FROM 0.2 TO 1UG/KG/DAY

REACTIONS (1)
  - HYPERTENSION [None]
